FAERS Safety Report 15785518 (Version 2)
Quarter: 2019Q1

REPORT INFORMATION
  Report Type: Report from Study
  Country: US (occurrence: US)
  Receive Date: 20190103
  Receipt Date: 20190115
  Transmission Date: 20190417
  Serious: Yes (Hospitalization, Other)
  Sender: FDA-Public Use
  Company Number: US-TESARO-2018-TSO1984-US

PATIENT
  Sex: Female

DRUGS (2)
  1. ZEJULA [Suspect]
     Active Substance: NIRAPARIB
     Indication: MALIGNANT PERITONEAL NEOPLASM
     Dosage: 300 MG, QD
     Route: 048
     Dates: start: 20171010, end: 201811
  2. ZEJULA [Suspect]
     Active Substance: NIRAPARIB
     Dosage: 100 MG DAILY
     Dates: start: 20181126

REACTIONS (12)
  - Urinary tract disorder [Unknown]
  - Dry mouth [Unknown]
  - Underdose [Unknown]
  - Thrombocytopenia [Unknown]
  - Pyrexia [Unknown]
  - Asthenia [Unknown]
  - Fatigue [Unknown]
  - White blood cell count decreased [Unknown]
  - Pancytopenia [Unknown]
  - Bone marrow failure [Unknown]
  - Anaemia [Unknown]
  - Neutropenia [Unknown]
